APPROVED DRUG PRODUCT: FENTANYL-75
Active Ingredient: FENTANYL
Strength: 75MCG/HR
Dosage Form/Route: FILM, EXTENDED RELEASE;TRANSDERMAL
Application: A076709 | Product #003
Applicant: ACTAVIS LABORATORIES UT INC INDIRECT WHOLLY OWNED SUB OF TEVA PHARMACEUTICALS USA INC
Approved: Aug 20, 2007 | RLD: No | RS: No | Type: DISCN